FAERS Safety Report 5675726-2 (Version None)
Quarter: 2008Q1

REPORT INFORMATION
  Report Type: 
  Country: None (occurrence: None)
  Receive Date: 20080321
  Receipt Date: 20080312
  Transmission Date: 20080703
  Serious: Yes (Hospitalization, Other)
  Sender: FDA-Public Use
  Company Number: US-ROCHE-511387

PATIENT
  Age: 47 Year
  Sex: Female

DRUGS (5)
  1. PEG-INTERFERON A-2A (RO 25-8310) [Suspect]
     Indication: HEPATITIS C VIRUS
     Dosage: INDICATION ALSO REPORTED AS ACUTE HEPATITIS C, GENOTYPE 4 COMPLETED 43 WEEKS OF TREATMENT
     Route: 065
     Dates: start: 20070330
  2. PEG-INTERFERON A-2A (RO 25-8310) [Suspect]
     Route: 065
  3. PEG-INTERFERON A-2A (RO 25-8310) [Suspect]
     Route: 065
     Dates: end: 20080116
  4. RIBAVIRIN [Suspect]
     Indication: HEPATITIS C VIRUS
     Dosage: INDICATION ALSO REPORTED AS ACUTE HEPATITIS C, GENOTYPE 4 COMPLETED 43 WEEKS OF TREATMENT
     Route: 065
     Dates: start: 20070330, end: 20080116
  5. SYNTHROID [Concomitant]
     Indication: THYROID DISORDER

REACTIONS (8)
  - DEAFNESS [None]
  - DELUSION [None]
  - DRUG ADMINISTRATION ERROR [None]
  - EROSIVE OESOPHAGITIS [None]
  - GASTROENTERITIS [None]
  - HYPERTHYROIDISM [None]
  - LYMPHADENOPATHY [None]
  - LYMPHOMA [None]
